FAERS Safety Report 9659434 (Version 4)
Quarter: 2013Q4

REPORT INFORMATION
  Report Type: Report from Study
  Country: CA (occurrence: CA)
  Receive Date: 20131031
  Receipt Date: 20131231
  Transmission Date: 20140711
  Serious: Yes (Other)
  Sender: FDA-Public Use
  Company Number: CA-ABBVIE-13P-028-1161936-00

PATIENT
  Age: 24 Year
  Sex: Male

DRUGS (5)
  1. EPIVAL [Suspect]
     Indication: MOOD SWINGS
     Route: 048
     Dates: start: 20071101
  2. APO-CLOZAPINE [Suspect]
     Indication: PSYCHOTIC DISORDER
     Dosage: AT BEDTIME
     Route: 048
     Dates: start: 20120301, end: 20130328
  3. BENZTROPINE [Concomitant]
     Indication: PRODUCT USED FOR UNKNOWN INDICATION
     Dates: start: 20071101
  4. CLONAZEPAM [Concomitant]
     Indication: PRODUCT USED FOR UNKNOWN INDICATION
     Dates: start: 20090527
  5. LOXAPINE [Concomitant]
     Indication: PRODUCT USED FOR UNKNOWN INDICATION
     Dates: start: 20071101

REACTIONS (6)
  - Foetal alcohol syndrome [Recovered/Resolved]
  - Mental disability [Recovered/Resolved]
  - Neutrophil count decreased [Recovered/Resolved]
  - Schizophrenia, paranoid type [Recovered/Resolved]
  - White blood cell count decreased [Recovered/Resolved]
  - Drug ineffective [Recovered/Resolved]
